FAERS Safety Report 16361183 (Version 2)
Quarter: 2019Q2

REPORT INFORMATION
  Report Type: Spontaneous
  Country: CN (occurrence: CN)
  Receive Date: 20190528
  Receipt Date: 20190528
  Transmission Date: 20190711
  Serious: Yes (Other)
  Sender: FDA-Public Use
  Company Number: PHHY2019CN107549

PATIENT
  Age: 51 Year
  Sex: Female

DRUGS (3)
  1. ELTROMBOPAG [Suspect]
     Active Substance: ELTROMBOPAG
     Indication: APLASTIC ANAEMIA
     Dosage: 75 MG, UNK
     Route: 065
     Dates: start: 20190208
  2. CICLOSPORIN [Suspect]
     Active Substance: CYCLOSPORINE
     Indication: PRODUCT USED FOR UNKNOWN INDICATION
     Dosage: UNK
     Route: 065
  3. IST [Concomitant]
     Indication: PRODUCT USED FOR UNKNOWN INDICATION
     Dosage: UNK
     Route: 065

REACTIONS (5)
  - Liver function test abnormal [Recovering/Resolving]
  - Alanine aminotransferase increased [Recovering/Resolving]
  - Abdominal discomfort [Recovering/Resolving]
  - Aspartate aminotransferase increased [Recovering/Resolving]
  - Arthralgia [Recovering/Resolving]
